FAERS Safety Report 5781506-X (Version None)
Quarter: 2008Q2

REPORT INFORMATION
  Report Type: 
  Country: None (occurrence: None)
  Receive Date: 20080623
  Receipt Date: 20080616
  Transmission Date: 20081010
  Serious: Yes (Hospitalization)
  Sender: FDA-Public Use
  Company Number: US-KINGPHARMUSA00001-K200800693

PATIENT

DRUGS (1)
  1. EPIPEN JR. [Suspect]
     Indication: HYPERSENSITIVITY
     Dosage: .15 MG, SINGLE
     Route: 030

REACTIONS (1)
  - DRUG ADMINISTRATION ERROR [None]
